FAERS Safety Report 6314002-1 (Version None)
Quarter: 2009Q3

REPORT INFORMATION
  Report Type: 
  Country: None (occurrence: None)
  Receive Date: 20090818
  Receipt Date: 20090811
  Transmission Date: 20100115
  Serious: Yes (Disabling, Other)
  Sender: FDA-Public Use
  Company Number: PHHY2009FR29511

PATIENT
  Sex: Female

DRUGS (6)
  1. ACLASTA [Suspect]
     Indication: OSTEOPOROSIS
     Dosage: 5 MG, UNK
     Dates: start: 20090525
  2. KERLONE [Concomitant]
  3. SIMVASTATIN [Concomitant]
  4. CALTRATE [Concomitant]
  5. VITAMIN D3 [Concomitant]
  6. ZOFENIL [Concomitant]

REACTIONS (15)
  - CATARACT OPERATION [None]
  - EYE IRRITATION [None]
  - EYE OEDEMA [None]
  - EYE PAIN [None]
  - EYE PRURITUS [None]
  - EYELID OEDEMA [None]
  - EYELID PTOSIS [None]
  - INSOMNIA [None]
  - LACRIMATION INCREASED [None]
  - MACULAR DEGENERATION [None]
  - OCULAR HYPERAEMIA [None]
  - PHOTOPHOBIA [None]
  - PYREXIA [None]
  - UVEITIS [None]
  - VISION BLURRED [None]
